FAERS Safety Report 4652220-9 (Version None)
Quarter: 2005Q2

REPORT INFORMATION
  Report Type: 
  Country: None (occurrence: None)
  Receive Date: 20050504
  Receipt Date: 20050419
  Transmission Date: 20051028
  Serious: Yes (Hospitalization)
  Sender: FDA-Public Use
  Company Number: NL-JNJFOC-20040905244

PATIENT
  Sex: Male

DRUGS (9)
  1. INFLIXIMAB, RECOMBINANT [Suspect]
     Dosage: TOTAL 405MG
     Route: 042
  2. INFLIXIMAB, RECOMBINANT [Suspect]
     Indication: UVEITIS
     Dosage: TOTAL 405MG
     Route: 042
  3. PREDNISONE TAB [Concomitant]
     Route: 049
  4. PREDNISONE TAB [Concomitant]
     Route: 049
  5. PREDNISONE TAB [Concomitant]
     Route: 049
  6. CYCLOSPORINE [Concomitant]
     Route: 049
  7. CYCLOSPORINE [Concomitant]
     Route: 049
  8. AZATHIOPRINE [Concomitant]
     Route: 049
  9. AZATHIOPRINE [Concomitant]
     Route: 049

REACTIONS (1)
  - TUBERCULOSIS [None]
